FAERS Safety Report 10672252 (Version 1)
Quarter: 2014Q4

REPORT INFORMATION
  Report Type: Spontaneous
  Country: GB (occurrence: GB)
  Receive Date: 20141223
  Receipt Date: 20141223
  Transmission Date: 20150529
  Serious: Yes (Disabling, Other)
  Sender: FDA-Public Use
  Company Number: PHFR2014GB008768

PATIENT

DRUGS (2)
  1. TEGRETOL [Suspect]
     Active Substance: CARBAMAZEPINE
     Indication: PRODUCT USED FOR UNKNOWN INDICATION
     Dosage: UNK (MOTHER DOSE 200 MG BID)
     Route: 064
  2. TEGRETOL [Suspect]
     Active Substance: CARBAMAZEPINE
     Dosage: UNK (MOTHER DOSE 600 MG BID)
     Route: 064

REACTIONS (7)
  - Hypermobility syndrome [Not Recovered/Not Resolved]
  - Speech disorder developmental [Not Recovered/Not Resolved]
  - Developmental delay [Not Recovered/Not Resolved]
  - Hypotonia [Not Recovered/Not Resolved]
  - Learning disorder [Not Recovered/Not Resolved]
  - Coordination abnormal [Not Recovered/Not Resolved]
  - Sleep disorder [Not Recovered/Not Resolved]

NARRATIVE: CASE EVENT DATE: 201109
